FAERS Safety Report 21240286 (Version 2)
Quarter: 2022Q3

REPORT INFORMATION
  Report Type: Spontaneous
  Country: US (occurrence: US)
  Receive Date: 20220822
  Receipt Date: 20220923
  Transmission Date: 20221027
  Serious: No
  Sender: FDA-Public Use
  Company Number: US-MLMSERVICE-20220728-3704744-1

PATIENT
  Age: 77 Year
  Sex: Male
  Weight: 80.726 kg

DRUGS (8)
  1. TRUSOPT [Interacting]
     Active Substance: DORZOLAMIDE HYDROCHLORIDE
     Indication: Open angle glaucoma
     Dosage: TWICE DAILY, BOTH EYES (ROUTE OF ADMINISTRATION ALSO REPORTED AS TOPICALLY)
  2. LIFITEGRAST [Interacting]
     Active Substance: LIFITEGRAST
     Indication: Open angle glaucoma
     Dosage: TWICE DAILY, BOTH EYES (ROUTE OF ADMINISTRATION ALSO REPORTED AS TOPICALLY); STARTED BEFORE 2018
  3. LIFITEGRAST [Interacting]
     Active Substance: LIFITEGRAST
     Indication: Dry eye
     Dosage: QDAY, BOTH EYES (ROUTE OF ADMINISTRATION ALSO REPORTED AS TOPICALLY)
  4. LIFITEGRAST [Interacting]
     Active Substance: LIFITEGRAST
     Indication: Limbal stem cell deficiency
  5. LATANOPROST [Concomitant]
     Active Substance: LATANOPROST
     Dosage: AT NIGHT, BOTH EYES
  6. NOVOTEARS [Concomitant]
     Dosage: TWICE DAILY, BOTH EYES
  7. ARTIFICIAL TEARS [HYPROMELLOSE] [Concomitant]
     Dosage: FOUR TIMES DAILY, BOTH EYES
  8. SODIUM CHLORIDE [Concomitant]
     Active Substance: SODIUM CHLORIDE
     Indication: Corrective lens user

REACTIONS (2)
  - Eye discharge [Recovering/Resolving]
  - Drug interaction [Recovering/Resolving]
